FAERS Safety Report 12968466 (Version 1)
Quarter: 2016Q4

REPORT INFORMATION
  Report Type: Report from Study
  Country: ES (occurrence: ES)
  Receive Date: 20161123
  Receipt Date: 20161123
  Transmission Date: 20170207
  Serious: Yes (Death, Life-Threatening, Hospitalization, Other)
  Sender: FDA-Public Use
  Company Number: ES-TAKEDA-2016MPI009613

PATIENT
  Age: 86 Year
  Sex: Male
  Weight: 69 kg

DRUGS (29)
  1. DARATUMUMAB [Suspect]
     Active Substance: DARATUMUMAB
     Indication: PLASMA CELL MYELOMA
     Dosage: 1120 MG, MONTHLY
     Route: 042
     Dates: start: 20150317, end: 20161011
  2. TORASEMIDE [Concomitant]
     Active Substance: TORSEMIDE
     Indication: CARDIAC FAILURE
     Route: 048
     Dates: start: 20150422, end: 20161103
  3. HIBOR [Concomitant]
     Active Substance: BEMIPARIN SODIUM
     Indication: PULMONARY EMBOLISM
     Dosage: 7500 IU, QD
     Route: 058
     Dates: start: 201503, end: 20161103
  4. BUDESONIDE W/FORMOTEROL [Concomitant]
     Active Substance: BUDESONIDE\FORMOTEROL
     Indication: RESPIRATORY TRACT INFECTION
     Dosage: UNK, BID
     Route: 055
     Dates: start: 20150929, end: 20161103
  5. BUDESONIDE. [Concomitant]
     Active Substance: BUDESONIDE
     Indication: INFUSION RELATED REACTION
  6. VELCADE [Suspect]
     Active Substance: BORTEZOMIB
     Indication: PLASMA CELL MYELOMA
     Dosage: 2.42 MG, UNK
     Route: 058
     Dates: start: 20160317
  7. IPRATROPIUM BROMIDE. [Concomitant]
     Active Substance: IPRATROPIUM BROMIDE
     Indication: BRONCHOSPASM
     Dosage: 500 MG, UNK
     Route: 055
     Dates: start: 20150317, end: 20150317
  8. IPRATROPIUM BROMIDE. [Concomitant]
     Active Substance: IPRATROPIUM BROMIDE
     Indication: INFUSION RELATED REACTION
  9. BUDESONIDE. [Concomitant]
     Active Substance: BUDESONIDE
     Indication: BRONCHOSPASM
     Dosage: 0.5 MG, UNK
     Route: 055
     Dates: start: 20150317, end: 20150317
  10. MELPHALAN [Concomitant]
     Active Substance: MELPHALAN
     Indication: PLASMA CELL MYELOMA
     Dosage: 16 MG, UNK
     Route: 048
     Dates: start: 20150317
  11. PANTOPRAZOLE [Concomitant]
     Active Substance: PANTOPRAZOLE SODIUM
     Indication: BARRETT^S OESOPHAGUS
  12. ONDANSETRON [Concomitant]
     Active Substance: ONDANSETRON
     Indication: NAUSEA
     Route: 048
     Dates: start: 20150317, end: 20161103
  13. PANTOPRAZOLE [Concomitant]
     Active Substance: PANTOPRAZOLE SODIUM
     Indication: GASTROOESOPHAGEAL REFLUX DISEASE
  14. HIBOR [Concomitant]
     Active Substance: BEMIPARIN SODIUM
     Indication: PULMONARY EMBOLISM
  15. LEVOFLOXACIN. [Concomitant]
     Active Substance: LEVOFLOXACIN
     Indication: PNEUMONIA
     Dosage: 500 MG, UNK
     Route: 042
     Dates: start: 20160110
  16. URBASON                            /00049601/ [Concomitant]
     Active Substance: METHYLPREDNISOLONE
     Indication: INTERSTITIAL LUNG DISEASE
  17. DEXAMETHASONE. [Concomitant]
     Active Substance: DEXAMETHASONE
     Indication: BRONCHOSPASM
     Dosage: 20 MG, UNK
     Route: 042
     Dates: start: 20150317, end: 20150317
  18. SOLU MODERIN [Concomitant]
     Active Substance: METHYLPREDNISOLONE SODIUM SUCCINATE
     Indication: BRONCHOSPASM
     Dosage: 62.5 MG, UNK
     Route: 042
     Dates: start: 20150317, end: 20150317
  19. ACICLOVIR [Concomitant]
     Active Substance: ACYCLOVIR
     Indication: PROPHYLAXIS
     Dosage: 800 MG, QD
     Route: 048
     Dates: start: 20150317, end: 20161103
  20. LORMETAZEPAM [Concomitant]
     Active Substance: LORMETAZEPAM
     Indication: SLEEP DISORDER THERAPY
     Route: 048
     Dates: start: 20150320, end: 20161103
  21. URBASON                            /00049601/ [Concomitant]
     Active Substance: METHYLPREDNISOLONE
     Indication: INTERSTITIAL LUNG DISEASE
     Dosage: 20 MG, QD
     Route: 048
     Dates: start: 20160528, end: 20161103
  22. PREDNISONE. [Suspect]
     Active Substance: PREDNISONE
     Indication: PLASMA CELL MYELOMA
     Dosage: 110 MG, UNK
     Route: 048
     Dates: start: 20150317
  23. PANTOPRAZOLE [Concomitant]
     Active Substance: PANTOPRAZOLE SODIUM
     Indication: GASTRIC ULCER PERFORATION
     Dosage: 40 MG, QD
     Route: 048
     Dates: start: 20001210, end: 20161103
  24. LEVOFLOXACIN. [Concomitant]
     Active Substance: LEVOFLOXACIN
     Indication: RESPIRATORY TRACT INFECTION
     Dosage: 500 MG, QD
     Route: 048
     Dates: start: 20150929, end: 20161103
  25. PARACETAMOL [Concomitant]
     Active Substance: ACETAMINOPHEN
     Indication: MUSCULOSKELETAL CHEST PAIN
     Route: 048
     Dates: start: 20150303, end: 20161103
  26. OXYGEN. [Concomitant]
     Active Substance: OXYGEN
     Indication: INTERSTITIAL LUNG DISEASE
     Dosage: UNK
     Route: 045
     Dates: start: 20150419, end: 20161103
  27. OXYGEN. [Concomitant]
     Active Substance: OXYGEN
     Indication: RESPIRATORY TRACT INFECTION
  28. DEXAMETHASONE. [Concomitant]
     Active Substance: DEXAMETHASONE
     Indication: INFUSION RELATED REACTION
  29. SOLU MODERIN [Concomitant]
     Active Substance: METHYLPREDNISOLONE SODIUM SUCCINATE
     Indication: INFUSION RELATED REACTION

REACTIONS (2)
  - Plasmacytoma [Not Recovered/Not Resolved]
  - Intestinal ischaemia [Fatal]

NARRATIVE: CASE EVENT DATE: 20161028
